FAERS Safety Report 5016429-7 (Version None)
Quarter: 2006Q2

REPORT INFORMATION
  Report Type: 
  Country: None (occurrence: None)
  Receive Date: 20060602
  Receipt Date: 20060516
  Transmission Date: 20061013
  Serious: Yes (Other)
  Sender: FDA-Public Use
  Company Number: PHEH2006US06523

PATIENT
  Age: 69 Year
  Sex: Male

DRUGS (5)
  1. ZOMETA [Suspect]
     Indication: MULTIPLE MYELOMA
     Dosage: 4MG Q4H
     Dates: start: 20020301, end: 20020401
  2. AREDIA [Suspect]
     Indication: MULTIPLE MYELOMA
     Dosage: UNK, MONTHLY
     Dates: start: 19970120, end: 20020611
  3. THALIDOMIDE [Concomitant]
     Indication: MULTIPLE MYELOMA
     Dates: start: 19990601, end: 19991001
  4. PREDNISONE [Concomitant]
     Indication: MULTIPLE MYELOMA
  5. MELPHALAN [Concomitant]
     Indication: MULTIPLE MYELOMA

REACTIONS (3)
  - DIALYSIS [None]
  - OSTEONECROSIS [None]
  - RENAL FAILURE [None]
